FAERS Safety Report 9101809 (Version 2)
Quarter: 2013Q1

REPORT INFORMATION
  Report Type: Spontaneous
  Country: US (occurrence: US)
  Receive Date: 20130218
  Receipt Date: 20130306
  Transmission Date: 20140127
  Serious: Yes (Death)
  Sender: FDA-Public Use
  Company Number: US-ASTELLAS-2013US001683

PATIENT
  Age: 62 Year
  Sex: Male

DRUGS (8)
  1. TARCEVA [Suspect]
     Indication: HEPATIC CANCER
     Dosage: 150 MG, UID/QD
     Route: 048
     Dates: start: 20120312, end: 20120327
  2. AVASTIN                            /01555201/ [Suspect]
     Indication: HEPATIC CANCER
     Dosage: 10 MG/KG, 1 IN 2 WK
     Route: 042
     Dates: start: 20120312, end: 20120327
  3. PROGRAF [Concomitant]
     Indication: LIVER TRANSPLANT
     Dosage: 2 MG, UID/QD
     Route: 048
  4. DILTIAZEM                          /00489702/ [Concomitant]
     Indication: PRODUCT USED FOR UNKNOWN INDICATION
     Dosage: 300 MG, UID/QD
     Route: 048
  5. NEXIUM                             /01479302/ [Concomitant]
     Indication: GASTROOESOPHAGEAL REFLUX DISEASE
     Dosage: 40 MG, UID/QD
     Route: 048
  6. MARINOL                            /00897601/ [Concomitant]
     Indication: PRODUCT USED FOR UNKNOWN INDICATION
     Dosage: 2.5 MG, BID
     Route: 048
  7. DILAUDID [Concomitant]
     Indication: PRODUCT USED FOR UNKNOWN INDICATION
     Dosage: 1 DF, UID/QD
     Route: 048
  8. SENNA                              /00142201/ [Concomitant]
     Indication: PRODUCT USED FOR UNKNOWN INDICATION
     Dosage: UNK
     Route: 048

REACTIONS (2)
  - Off label use [Unknown]
  - Respiratory failure [Fatal]
